FAERS Safety Report 8461398-0 (Version None)
Quarter: 2012Q2

REPORT INFORMATION
  Report Type: 
  Country: None (occurrence: None)
  Receive Date: 20120625
  Receipt Date: 20120524
  Transmission Date: 20120825
  Serious: No
  Sender: FDA-Public Use
  Company Number: US-JNJFOC-20120520663

PATIENT
  Sex: Male

DRUGS (2)
  1. INVEGA SUSTENNA [Suspect]
     Indication: PRODUCT USED FOR UNKNOWN INDICATION
     Route: 030
     Dates: start: 20120101
  2. COGENTIN [Concomitant]
     Route: 048

REACTIONS (4)
  - BREAST MASS [None]
  - BREAST TENDERNESS [None]
  - DRUG DOSE OMISSION [None]
  - SEXUAL DYSFUNCTION [None]
